FAERS Safety Report 21627202 (Version 1)
Quarter: 2022Q4

REPORT INFORMATION
  Report Type: Report from Study
  Country: US (occurrence: US)
  Receive Date: 20221122
  Receipt Date: 20221122
  Transmission Date: 20230112
  Serious: Yes (Other)
  Sender: FDA-Public Use
  Company Number: US-002147023-NVSC2022US262146

PATIENT
  Age: 82 Year
  Sex: Male

DRUGS (1)
  1. ENTRESTO [Suspect]
     Active Substance: SACUBITRIL\VALSARTAN
     Indication: Product used for unknown indication
     Dosage: 1 DOSAGE FORM, BID
     Route: 065

REACTIONS (8)
  - Pulmonary hypertension [Unknown]
  - Anaemia [Unknown]
  - Weight decreased [Unknown]
  - Oedema [Recovering/Resolving]
  - Sneezing [Unknown]
  - Decreased appetite [Unknown]
  - Lung opacity [Unknown]
  - Fatigue [Unknown]

NARRATIVE: CASE EVENT DATE: 20221006
